FAERS Safety Report 7517634-8 (Version None)
Quarter: 2011Q2

REPORT INFORMATION
  Report Type: 
  Country: None (occurrence: None)
  Receive Date: 20110601
  Receipt Date: 20110523
  Transmission Date: 20111010
  Serious: Yes (Other)
  Sender: FDA-Public Use
  Company Number: NZ-SANOFI-AVENTIS-2011SA032335

PATIENT
  Age: 72 Year
  Sex: Male

DRUGS (21)
  1. RANITIDINE [Concomitant]
     Route: 065
  2. RIFAMPICIN [Suspect]
     Route: 065
  3. NYSTATIN [Concomitant]
     Route: 065
  4. DUTASTERIDE [Concomitant]
     Route: 065
  5. ALBUTEROL [Concomitant]
     Route: 065
  6. CALCIUM CARBONATE [Concomitant]
     Route: 065
  7. PREDNISOLONE [Concomitant]
     Route: 065
  8. CYCLOSPORINE [Concomitant]
     Route: 065
  9. DOCUSATE CALCIUM [Concomitant]
     Route: 065
  10. ISPAGHULA [Concomitant]
     Route: 065
  11. SULFAMETHOXAZOLE AND TRIMETHOPRIM [Concomitant]
     Route: 065
  12. DOXAZOSIN MESYLATE [Concomitant]
     Route: 065
  13. ALLOPURINOL [Concomitant]
     Route: 065
  14. TAMSULOSIN HYDROCHLORIDE [Concomitant]
     Route: 065
  15. BUDESONIDE/FORMOTEROL [Concomitant]
     Route: 065
  16. ENOXAPARIN [Concomitant]
     Route: 065
  17. VANCOMYCIN [Concomitant]
     Route: 065
  18. AMITRIPTYLINE HCL [Concomitant]
     Route: 065
  19. ASPIRIN [Concomitant]
     Route: 065
  20. PRAVASTATIN SODIUM [Concomitant]
     Route: 065
  21. ALENDRONATE SODIUM [Concomitant]
     Route: 065

REACTIONS (8)
  - OEDEMA PERIPHERAL [None]
  - MOBILITY DECREASED [None]
  - MYALGIA [None]
  - OEDEMA [None]
  - ARTHRALGIA [None]
  - GRIP STRENGTH DECREASED [None]
  - C-REACTIVE PROTEIN INCREASED [None]
  - SERONEGATIVE ARTHRITIS [None]
